FAERS Safety Report 8319339-2 (Version None)
Quarter: 2012Q2

REPORT INFORMATION
  Report Type: 
  Country: None (occurrence: None)
  Receive Date: 20120427
  Receipt Date: 20090915
  Transmission Date: 20120825
  Serious: No
  Sender: FDA-Public Use
  Company Number: US-TEVA-2009010424

PATIENT
  Sex: Male
  Weight: 138.92 kg

DRUGS (6)
  1. LYRICA [Concomitant]
  2. CRESTOR [Concomitant]
  3. OXYCONTIN [Concomitant]
  4. CELEBREX [Concomitant]
  5. HYDROCODONE BITARTRATE [Concomitant]
  6. NUVIGIL [Suspect]
     Indication: SLEEP APNOEA SYNDROME
     Dosage: 250 MILLIGRAM;
     Route: 048
     Dates: start: 20090815

REACTIONS (2)
  - INTENTIONAL DRUG MISUSE [None]
  - DRUG INEFFECTIVE [None]
